FAERS Safety Report 25525489 (Version 1)
Quarter: 2025Q3

REPORT INFORMATION
  Report Type: Spontaneous
  Country: US (occurrence: US)
  Receive Date: 20250707
  Receipt Date: 20250707
  Transmission Date: 20251020
  Serious: Yes (Hospitalization)
  Sender: MYLAN
  Company Number: US-MYLANLABS-2025M1055201

PATIENT
  Age: 80 Year
  Sex: Female
  Weight: 63.5 kg

DRUGS (50)
  1. CHLORTHALIDONE [Suspect]
     Active Substance: CHLORTHALIDONE
     Indication: Product used for unknown indication
  2. CHLORTHALIDONE [Suspect]
     Active Substance: CHLORTHALIDONE
     Route: 065
  3. CHLORTHALIDONE [Suspect]
     Active Substance: CHLORTHALIDONE
     Route: 065
  4. CHLORTHALIDONE [Suspect]
     Active Substance: CHLORTHALIDONE
  5. GOLYTELY [Suspect]
     Active Substance: POLYETHYLENE GLYCOL 3350\POTASSIUM CHLORIDE\SODIUM BICARBONATE\SODIUM CHLORIDE\SODIUM SULFATE
     Indication: Colonoscopy
     Dates: start: 20250204, end: 20250205
  6. GOLYTELY [Suspect]
     Active Substance: POLYETHYLENE GLYCOL 3350\POTASSIUM CHLORIDE\SODIUM BICARBONATE\SODIUM CHLORIDE\SODIUM SULFATE
     Route: 048
     Dates: start: 20250204, end: 20250205
  7. GOLYTELY [Suspect]
     Active Substance: POLYETHYLENE GLYCOL 3350\POTASSIUM CHLORIDE\SODIUM BICARBONATE\SODIUM CHLORIDE\SODIUM SULFATE
     Route: 048
     Dates: start: 20250204, end: 20250205
  8. GOLYTELY [Suspect]
     Active Substance: POLYETHYLENE GLYCOL 3350\POTASSIUM CHLORIDE\SODIUM BICARBONATE\SODIUM CHLORIDE\SODIUM SULFATE
     Dates: start: 20250204, end: 20250205
  9. WARFARIN [Concomitant]
     Active Substance: WARFARIN
  10. WARFARIN [Concomitant]
     Active Substance: WARFARIN
     Route: 065
  11. WARFARIN [Concomitant]
     Active Substance: WARFARIN
     Route: 065
  12. WARFARIN [Concomitant]
     Active Substance: WARFARIN
  13. INDAPAMIDE [Concomitant]
     Active Substance: INDAPAMIDE
     Route: 065
  14. INDAPAMIDE [Concomitant]
     Active Substance: INDAPAMIDE
  15. LISINOPRIL [Concomitant]
     Active Substance: LISINOPRIL
     Dosage: 25 MILLIGRAM, QD (DAILY)
     Route: 048
     Dates: start: 20250131
  16. LISINOPRIL [Concomitant]
     Active Substance: LISINOPRIL
     Dosage: 25 MILLIGRAM, QD (DAILY)
     Dates: start: 20250131
  17. LISINOPRIL [Concomitant]
     Active Substance: LISINOPRIL
     Dosage: 25 MILLIGRAM, QD (DAILY)
     Dates: start: 20250131
  18. LISINOPRIL [Concomitant]
     Active Substance: LISINOPRIL
     Dosage: 25 MILLIGRAM, QD (DAILY)
     Route: 048
     Dates: start: 20250131
  19. LISINOPRIL [Concomitant]
     Active Substance: LISINOPRIL
     Route: 065
  20. LISINOPRIL [Concomitant]
     Active Substance: LISINOPRIL
  21. LISINOPRIL [Concomitant]
     Active Substance: LISINOPRIL
  22. LISINOPRIL [Concomitant]
     Active Substance: LISINOPRIL
     Route: 065
  23. MAGNESIUM OXIDE [Concomitant]
     Active Substance: MAGNESIUM OXIDE
     Dosage: 400 MILLIGRAM, QD (DAILLY)
  24. MAGNESIUM OXIDE [Concomitant]
     Active Substance: MAGNESIUM OXIDE
     Dosage: 400 MILLIGRAM, QD (DAILLY)
     Route: 048
  25. MAGNESIUM OXIDE [Concomitant]
     Active Substance: MAGNESIUM OXIDE
     Dosage: 400 MILLIGRAM, QD (DAILLY)
     Route: 048
  26. MAGNESIUM OXIDE [Concomitant]
     Active Substance: MAGNESIUM OXIDE
     Dosage: 400 MILLIGRAM, QD (DAILLY)
  27. ESTRACE [Concomitant]
     Active Substance: ESTRADIOL
     Dosage: 1 GRAM, BIWEEKLY (TWICE WEEKLY)
     Dates: start: 20241114
  28. ESTRACE [Concomitant]
     Active Substance: ESTRADIOL
     Dosage: 1 GRAM, BIWEEKLY (TWICE WEEKLY)
     Route: 067
     Dates: start: 20241114
  29. ESTRACE [Concomitant]
     Active Substance: ESTRADIOL
     Dosage: 1 GRAM, BIWEEKLY (TWICE WEEKLY)
     Route: 067
     Dates: start: 20241114
  30. ESTRACE [Concomitant]
     Active Substance: ESTRADIOL
     Dosage: 1 GRAM, BIWEEKLY (TWICE WEEKLY)
     Dates: start: 20241114
  31. ATIVAN [Concomitant]
     Active Substance: LORAZEPAM
  32. ATIVAN [Concomitant]
     Active Substance: LORAZEPAM
     Route: 048
  33. ATIVAN [Concomitant]
     Active Substance: LORAZEPAM
     Route: 048
  34. ATIVAN [Concomitant]
     Active Substance: LORAZEPAM
  35. DOCUSATE SODIUM AND SENNA [Concomitant]
     Active Substance: DOCUSATE SODIUM\SENNOSIDES
     Dosage: 1 DOSAGE FORM, QD (DAILY)
  36. DOCUSATE SODIUM AND SENNA [Concomitant]
     Active Substance: DOCUSATE SODIUM\SENNOSIDES
     Dosage: 1 DOSAGE FORM, QD (DAILY)
     Route: 048
  37. DOCUSATE SODIUM AND SENNA [Concomitant]
     Active Substance: DOCUSATE SODIUM\SENNOSIDES
     Dosage: 1 DOSAGE FORM, QD (DAILY)
     Route: 048
  38. DOCUSATE SODIUM AND SENNA [Concomitant]
     Active Substance: DOCUSATE SODIUM\SENNOSIDES
     Dosage: 1 DOSAGE FORM, QD (DAILY)
  39. KLOR-CON M20 [Concomitant]
     Active Substance: POTASSIUM CHLORIDE
  40. KLOR-CON M20 [Concomitant]
     Active Substance: POTASSIUM CHLORIDE
     Route: 065
  41. KLOR-CON M20 [Concomitant]
     Active Substance: POTASSIUM CHLORIDE
     Route: 065
  42. KLOR-CON M20 [Concomitant]
     Active Substance: POTASSIUM CHLORIDE
  43. ELIQUIS [Concomitant]
     Active Substance: APIXABAN
  44. ELIQUIS [Concomitant]
     Active Substance: APIXABAN
     Route: 065
  45. ELIQUIS [Concomitant]
     Active Substance: APIXABAN
     Route: 065
  46. ELIQUIS [Concomitant]
     Active Substance: APIXABAN
  47. TOPROL XL [Concomitant]
     Active Substance: METOPROLOL SUCCINATE
  48. TOPROL XL [Concomitant]
     Active Substance: METOPROLOL SUCCINATE
     Route: 065
  49. TOPROL XL [Concomitant]
     Active Substance: METOPROLOL SUCCINATE
     Route: 065
  50. TOPROL XL [Concomitant]
     Active Substance: METOPROLOL SUCCINATE

REACTIONS (24)
  - Cerebral artery stenosis [Not Recovered/Not Resolved]
  - Tremor [Recovered/Resolved]
  - Atrial fibrillation [Recovered/Resolved]
  - Pain in extremity [Not Recovered/Not Resolved]
  - Anxiety [Recovered/Resolved]
  - Aphasia [Recovered/Resolved]
  - Balance disorder [Recovered/Resolved]
  - Asthenia [Not Recovered/Not Resolved]
  - Blood bilirubin increased [Recovered/Resolved]
  - Feeling abnormal [Recovered/Resolved]
  - Memory impairment [Not Recovered/Not Resolved]
  - Inappropriate antidiuretic hormone secretion [Recovered/Resolved]
  - Dehydration [Unknown]
  - Essential hypertension [Unknown]
  - Hypomagnesaemia [Recovered/Resolved]
  - Hypokalaemia [Recovered/Resolved]
  - Hyponatraemia [Recovered/Resolved]
  - Metabolic encephalopathy [Recovered/Resolved]
  - Blood electrolytes decreased [Recovered/Resolved]
  - Fatigue [Not Recovered/Not Resolved]
  - Hypertension [Recovered/Resolved]
  - Diarrhoea [Unknown]
  - Nausea [Recovered/Resolved]
  - Vomiting [Recovered/Resolved]

NARRATIVE: CASE EVENT DATE: 20250206
